APPROVED DRUG PRODUCT: CARBOPLATIN
Active Ingredient: CARBOPLATIN
Strength: 50MG/5ML (10MG/ML)
Dosage Form/Route: INJECTABLE;INTRAVENOUS
Application: A077244 | Product #001 | TE Code: AP
Applicant: HIKMA PHARMACEUTICALS USA INC
Approved: Oct 15, 2004 | RLD: No | RS: No | Type: RX